FAERS Safety Report 18931981 (Version 1)
Quarter: 2021Q1

REPORT INFORMATION
  Report Type: Spontaneous
  Country: US (occurrence: US)
  Receive Date: 20210223
  Receipt Date: 20210223
  Transmission Date: 20210420
  Serious: No
  Sender: FDA-Public Use
  Company Number: US-ROCHE-2716575

PATIENT
  Age: 40 Year
  Sex: Male

DRUGS (3)
  1. EVRYSDI [Suspect]
     Active Substance: RISDIPLAM
     Route: 065
  2. EVRYSDI [Suspect]
     Active Substance: RISDIPLAM
     Indication: SPINAL MUSCULAR ATROPHY
     Dosage: FREQUENCY:1; ONGOING:YES
     Route: 048
     Dates: start: 20201112
  3. EVRYSDI [Suspect]
     Active Substance: RISDIPLAM
     Route: 048
     Dates: start: 20201112

REACTIONS (5)
  - Hypoaesthesia teeth [Not Recovered/Not Resolved]
  - Gingival bleeding [Recovered/Resolved]
  - Diarrhoea [Recovered/Resolved]
  - Toothache [Not Recovered/Not Resolved]
  - Gingival pain [Not Recovered/Not Resolved]

NARRATIVE: CASE EVENT DATE: 20201115
